FAERS Safety Report 25673948 (Version 1)
Quarter: 2025Q3

REPORT INFORMATION
  Report Type: Spontaneous
  Country: US (occurrence: US)
  Receive Date: 20250813
  Receipt Date: 20250813
  Transmission Date: 20251020
  Serious: No
  Sender: AMGEN
  Company Number: US-AMGEN-USASP2025158386

PATIENT
  Age: 2 Month
  Sex: Female

DRUGS (1)
  1. BLINCYTO [Suspect]
     Active Substance: BLINATUMOMAB
     Indication: Acute lymphocytic leukaemia
     Dosage: 8 MICROGRAM, QD, 48 HOUR BAG (STRENGTH AND NUMBER OF VIALS REQUESTED FOR REPLACEMENT: 1 X 35 MCG VIA
     Route: 065

REACTIONS (2)
  - Intercepted product administration error [Unknown]
  - Complication associated with device [Unknown]

NARRATIVE: CASE EVENT DATE: 20250717
